FAERS Safety Report 8386961-7 (Version None)
Quarter: 2012Q2

REPORT INFORMATION
  Report Type: 
  Country: None (occurrence: None)
  Receive Date: 20120525
  Receipt Date: 20120523
  Transmission Date: 20120825
  Serious: Yes (Death)
  Sender: FDA-Public Use
  Company Number: IE-BAYER-2012-050795

PATIENT
  Age: 48 Year
  Sex: Female

DRUGS (2)
  1. PSYCHIATRIC MEDICATIONS (NOS) [Concomitant]
  2. BETASERON [Suspect]
     Indication: MULTIPLE SCLEROSIS
     Dosage: 8 MIU, QOD
     Route: 058
     Dates: start: 20041201

REACTIONS (1)
  - DEATH [None]
